FAERS Safety Report 8843766 (Version 3)
Quarter: 2013Q1

REPORT INFORMATION
  Report Type: Report from Study
  Country: US (occurrence: US)
  Receive Date: 20121016
  Receipt Date: 20130325
  Transmission Date: 20140127
  Serious: Yes (Hospitalization)
  Sender: FDA-Public Use
  Company Number: US-009507513-1210USA005712

PATIENT
  Age: 82 Year
  Sex: Male
  Weight: 84.3 kg

DRUGS (10)
  1. HEXADROL TABLETS [Suspect]
     Indication: PLASMA CELL MYELOMA
     Dosage: UNK
     Route: 048
     Dates: start: 20110919, end: 20110930
  2. STUDY DRUG (UNSPECIFIED) [Suspect]
     Indication: PLASMA CELL MYELOMA
     Dosage: 100 MG, QD
     Route: 042
     Dates: start: 20110919, end: 20110919
  3. BORTEZOMIB [Suspect]
     Indication: PLASMA CELL MYELOMA
     Dosage: 1.3 MG/M2, QD
     Route: 065
     Dates: start: 20110919, end: 20110929
  4. OXYCODONE [Concomitant]
     Dosage: UNK
  5. HYDROCHLOROTHIAZIDE [Concomitant]
     Dosage: UNK
     Dates: end: 20111006
  6. BACTRIM [Concomitant]
     Dosage: UNK
  7. ASCORBIC ACID [Concomitant]
     Dosage: UNK
  8. VITAMIN D (UNSPECIFIED) [Concomitant]
     Dosage: UNK
  9. ZOCOR [Concomitant]
     Dosage: UNK
  10. PEPCID [Concomitant]

REACTIONS (1)
  - Gastrointestinal haemorrhage [Recovered/Resolved]
